FAERS Safety Report 24011368 (Version 1)
Quarter: 2024Q2

REPORT INFORMATION
  Report Type: Spontaneous
  Country: GB (occurrence: GB)
  Receive Date: 20240625
  Receipt Date: 20240625
  Transmission Date: 20240716
  Serious: Yes (Death, Other)
  Sender: FDA-Public Use
  Company Number: GB-BAXTER-2024BAX020128

PATIENT
  Age: 75 Year
  Sex: Male

DRUGS (2)
  1. DEXTROSE [Suspect]
     Active Substance: DEXTROSE\DEXTROSE MONOHYDRATE
     Indication: Fluid replacement
     Dosage: 1000 ML (1 DOSE), OD (LONG TERM PRESCRIPTION)
     Route: 041
     Dates: start: 20240615, end: 20240616
  2. CALCIUM CHLORIDE\POTASSIUM CHLORIDE\SODIUM CHLORIDE\SODIUM LACTATE [Suspect]
     Active Substance: CALCIUM CHLORIDE\POTASSIUM CHLORIDE\SODIUM CHLORIDE\SODIUM LACTATE
     Indication: Fluid replacement
     Dosage: 1000 ML (1 DOSE), OD (LONG TERM PRESCRIPTION)
     Route: 041
     Dates: start: 20240615, end: 20240616

REACTIONS (3)
  - Death [Fatal]
  - General physical health deterioration [Unknown]
  - Malaise [Unknown]

NARRATIVE: CASE EVENT DATE: 20240616
